FAERS Safety Report 5602986-6 (Version None)
Quarter: 2008Q1

REPORT INFORMATION
  Report Type: 
  Country: None (occurrence: None)
  Receive Date: 20080125
  Receipt Date: 20080115
  Transmission Date: 20080703
  Serious: Yes (Life-Threatening, Hospitalization, Other)
  Sender: FDA-Public Use
  Company Number: DE-PFIZER INC-2007073167

PATIENT
  Sex: Female
  Weight: 57 kg

DRUGS (6)
  1. AROMASIN [Suspect]
     Indication: BREAST CANCER METASTATIC
     Route: 048
  2. KATADOLON [Suspect]
     Indication: BONE PAIN
  3. PAMIDRONATE DISODIUM [Concomitant]
     Dates: start: 20061103, end: 20070518
  4. ZOMETA [Concomitant]
     Dates: start: 20070615, end: 20070713
  5. ARIMIDEX [Concomitant]
  6. DOLO-PUREN [Concomitant]

REACTIONS (3)
  - ASCITES [None]
  - HEPATIC FAILURE [None]
  - NASOPHARYNGITIS [None]
